FAERS Safety Report 6784808-3 (Version None)
Quarter: 2010Q2

REPORT INFORMATION
  Report Type: 
  Country: None (occurrence: None)
  Receive Date: 20100622
  Receipt Date: 20100622
  Transmission Date: 20101027
  Serious: Yes (Other)
  Sender: FDA-Public Use
  Company Number: PHHY2009BD05325

PATIENT
  Sex: Female
  Weight: 47 kg

DRUGS (8)
  1. SEBIVO [Suspect]
     Indication: HEPATITIS B
     Dosage: 600 MG/DAY
     Route: 048
     Dates: start: 20090111, end: 20091130
  2. ESOMEPRAZOLE [Concomitant]
  3. PYRANTEL [Concomitant]
  4. MULTI-VITAMINS [Concomitant]
     Dosage: THRICE DAILY
     Route: 048
     Dates: start: 20090812
  5. TOLPERISONE [Concomitant]
  6. PARACETAMOL [Concomitant]
     Indication: PYREXIA
     Dosage: TWICE
     Route: 048
     Dates: start: 20090111, end: 20090115
  7. PIVMECILLINAM [Concomitant]
     Indication: DIARRHOEA
     Dosage: THRICE
     Route: 048
     Dates: start: 20090111, end: 20090114
  8. ANTRENYL [Concomitant]
     Dosage: 1/2 TABLET TWICE DAILY
     Dates: start: 20090524, end: 20090624

REACTIONS (3)
  - CAESAREAN SECTION [None]
  - DRUG EXPOSURE DURING PREGNANCY [None]
  - NORMAL NEWBORN [None]
